FAERS Safety Report 23240836 (Version 1)
Quarter: 2023Q4

REPORT INFORMATION
  Report Type: Spontaneous
  Country: US (occurrence: US)
  Receive Date: 20231129
  Receipt Date: 20231129
  Transmission Date: 20240110
  Serious: Yes (Other)
  Sender: FDA-Public Use
  Company Number: US-PFIZER INC-PV202300191752

PATIENT
  Age: 66 Year
  Sex: Male

DRUGS (3)
  1. METRONIDAZOLE [Suspect]
     Active Substance: METRONIDAZOLE
     Indication: Hepatic amoebiasis
     Dosage: 500 MG, 3X/DAY (THRICE DAILY)
     Route: 048
  2. METRONIDAZOLE [Suspect]
     Active Substance: METRONIDAZOLE
     Dosage: 750 MG, 3X/DAY (THRICE DAILY)
     Route: 048
  3. PAROMOMYCIN [Concomitant]
     Active Substance: PAROMOMYCIN
     Indication: Hepatic amoebiasis
     Dosage: 1000 MG, 3X/DAY (THRICE DAILY)
     Route: 048

REACTIONS (3)
  - Hepatic amoebiasis [Unknown]
  - Disease recurrence [Unknown]
  - Antibiotic level below therapeutic [Unknown]
